FAERS Safety Report 11302419 (Version 1)
Quarter: 2015Q3

REPORT INFORMATION
  Report Type: Spontaneous
  Country: GB (occurrence: GB)
  Receive Date: 20150723
  Receipt Date: 20150723
  Transmission Date: 20151125
  Serious: Yes (Other)
  Sender: FDA-Public Use
  Company Number: GB-FRESENIUS KABI-FK201503533

PATIENT
  Age: 2 Year
  Sex: Male

DRUGS (13)
  1. ETOPOSIDE (MANUFACTURER UNKNOWN) [Suspect]
     Active Substance: ETOPOSIDE
     Indication: X-LINKED CHROMOSOMAL DISORDER
     Route: 065
  2. METHYLPREDNISOLONE. [Concomitant]
     Active Substance: METHYLPREDNISOLONE
  3. DEXAMETHASONE INJECTION (MANUFACTURER UNKNOWN) [Suspect]
     Active Substance: DEXAMETHASONE
     Indication: X-LINKED CHROMOSOMAL DISORDER
     Route: 065
  4. ANTI-CD45 MONOCLONAL ANTIBODIES [Concomitant]
  5. ALEMTUZUMAB [Concomitant]
     Active Substance: ALEMTUZUMAB
  6. ETOPOSIDE (MANUFACTURER UNKNOWN) [Suspect]
     Active Substance: ETOPOSIDE
     Indication: HISTIOCYTOSIS HAEMATOPHAGIC
  7. MYCOPHENOLATE MOFETIL. [Concomitant]
     Active Substance: MYCOPHENOLATE MOFETIL
  8. DEXAMETHASONE INJECTION (MANUFACTURER UNKNOWN) [Suspect]
     Active Substance: DEXAMETHASONE
     Indication: HISTIOCYTOSIS HAEMATOPHAGIC
  9. CICLOSPORIN [Suspect]
     Active Substance: CYCLOSPORINE
     Indication: HISTIOCYTOSIS HAEMATOPHAGIC
  10. CYCLOPHOSPHAMIDE. [Concomitant]
     Active Substance: CYCLOPHOSPHAMIDE
  11. SIROLIMUS. [Concomitant]
     Active Substance: SIROLIMUS
  12. CICLOSPORIN [Suspect]
     Active Substance: CYCLOSPORINE
     Indication: X-LINKED CHROMOSOMAL DISORDER
  13. FLUDARABINE [Concomitant]
     Active Substance: FLUDARABINE PHOSPHATE

REACTIONS (5)
  - Candida sepsis [Recovered/Resolved]
  - Oral herpes [Recovered/Resolved]
  - Bone marrow failure [Recovered/Resolved]
  - Parainfluenzae virus infection [Recovered/Resolved]
  - Bacterial sepsis [Recovered/Resolved]
